FAERS Safety Report 4866870-8 (Version None)
Quarter: 2005Q4

REPORT INFORMATION
  Report Type: 
  Country: None (occurrence: None)
  Receive Date: 20051222
  Receipt Date: 20051209
  Transmission Date: 20060501
  Serious: Yes (Death, Hospitalization)
  Sender: FDA-Public Use
  Company Number: CHWYE216509DEC05

PATIENT
  Age: 75 Year
  Sex: Male

DRUGS (9)
  1. EFFEXOR [Suspect]
     Indication: AFFECTIVE DISORDER
     Dosage: 75 MG 1X PER 1 DAY ORAL
     Route: 048
     Dates: start: 20050101, end: 20050927
  2. ASPIRIN [Suspect]
     Indication: PLATELET AGGREGATION INHIBITION
     Dosage: 100 MG 1X PER 1 DAY ORAL
     Route: 048
     Dates: start: 20050101, end: 20051004
  3. LISINOPRIL [Suspect]
     Indication: ESSENTIAL HYPERTENSION
     Dosage: 2.5 MG 1X PER 1 DAY
     Dates: start: 20050101, end: 20050927
  4. METFORMIN HCL [Suspect]
     Indication: DIABETES MELLITUS NON-INSULIN-DEPENDENT
     Dosage: 0.5 G 3X PER 1 DAY ORAL
     Route: 048
     Dates: start: 20050101, end: 20050927
  5. NEXIUM [Suspect]
     Indication: DYSPEPSIA
     Dosage: 20 MG 1X PER 1 DAY ORAL
     Route: 048
     Dates: start: 20050101, end: 20050927
  6. SELIPRAN (PRAVASTATIN SODIUM) [Suspect]
     Indication: HYPERLIPIDAEMIA
     Dosage: 20 MG 1X PEER 1 DAY ORAL
     Route: 048
     Dates: start: 20050101, end: 20050927
  7. TOREM (TORASEMIDE) [Concomitant]
  8. PRADIF (TAMSULOSIN HYDROCHLORIDE) [Concomitant]
  9. PROSCAR [Concomitant]

REACTIONS (13)
  - ALCOHOLISM [None]
  - ASTHENIA [None]
  - BLOOD CULTURE POSITIVE [None]
  - CONDITION AGGRAVATED [None]
  - CYTOLYTIC HEPATITIS [None]
  - DUODENAL ULCER [None]
  - ENCEPHALOPATHY [None]
  - HAEMATOCHEZIA [None]
  - HEPATIC FAILURE [None]
  - HEPATIC NEOPLASM MALIGNANT [None]
  - HEPATITIS CHOLESTATIC [None]
  - PORTAL VEIN THROMBOSIS [None]
  - STREPTOCOCCAL INFECTION [None]
